FAERS Safety Report 18542917 (Version 1)
Quarter: 2020Q4

REPORT INFORMATION
  Report Type: Spontaneous
  Country: US (occurrence: US)
  Receive Date: 20201124
  Receipt Date: 20201124
  Transmission Date: 20210114
  Serious: No
  Sender: FDA-Public Use
  Company Number: US-GE HEALTHCARE LIFE SCIENCES-2020CSU004017

PATIENT
  Age: 68 Year
  Sex: Female

DRUGS (15)
  1. OMNIPAQUE [Suspect]
     Active Substance: IOHEXOL
     Indication: VERTEBROPLASTY
     Dosage: 50 ML, SINGLE
     Route: 037
     Dates: start: 20200827, end: 20200827
  2. ZANAFLEX [Concomitant]
     Active Substance: TIZANIDINE HYDROCHLORIDE
     Dosage: 2 MG
     Route: 065
  3. CEFAZOLIN [Concomitant]
     Active Substance: CEFAZOLIN
     Dosage: 2 GM, SINGLE
     Route: 042
     Dates: start: 20200827, end: 20200827
  4. DICLOFENAC SODIUM. [Concomitant]
     Active Substance: DICLOFENAC SODIUM
     Route: 065
  5. FAMOTIDINE. [Concomitant]
     Active Substance: FAMOTIDINE
     Dosage: 20 MG
     Route: 065
  6. PROPOFOL. [Concomitant]
     Active Substance: PROPOFOL
     Dosage: 10 MG
     Route: 042
     Dates: start: 20200827, end: 20200827
  7. DILTIAZEM. [Concomitant]
     Active Substance: DILTIAZEM
     Dosage: 120 MG
     Route: 065
  8. PREGABALIN. [Concomitant]
     Active Substance: PREGABALIN
     Dosage: 100 MG
     Route: 065
  9. MIDAZOLAM. [Concomitant]
     Active Substance: MIDAZOLAM
     Dosage: 2 MG
     Route: 065
     Dates: start: 20200827, end: 20200827
  10. ONDANSETRON [Concomitant]
     Active Substance: ONDANSETRON
     Dosage: 4 MG
     Route: 042
     Dates: start: 20200827, end: 20200827
  11. OMNIPAQUE [Suspect]
     Active Substance: IOHEXOL
     Indication: SPINAL COMPRESSION FRACTURE
  12. FENTANYL. [Concomitant]
     Active Substance: FENTANYL
     Dosage: 50 MCG
     Route: 065
     Dates: start: 20200827, end: 20200827
  13. EPINEPHRINE;LIDOCAINE [Concomitant]
     Dosage: UNK
     Route: 065
     Dates: start: 20200827, end: 20200827
  14. PERCOCET [Concomitant]
     Active Substance: ACETAMINOPHEN\OXYCODONE HYDROCHLORIDE
     Route: 065
  15. LIDOCAINE. [Concomitant]
     Active Substance: LIDOCAINE
     Dosage: 20 MG
     Route: 065
     Dates: start: 20200827, end: 20200827

REACTIONS (2)
  - No adverse event [Recovered/Resolved]
  - Drug ineffective [Recovered/Resolved]

NARRATIVE: CASE EVENT DATE: 20200827
